FAERS Safety Report 5711834-5 (Version None)
Quarter: 2008Q2

REPORT INFORMATION
  Report Type: 
  Country: None (occurrence: None)
  Receive Date: 20080421
  Receipt Date: 20080409
  Transmission Date: 20081010
  Serious: Yes (Other)
  Sender: FDA-Public Use
  Company Number: US-PFIZER INC-2008032334

PATIENT
  Sex: Female
  Weight: 52.272 kg

DRUGS (2)
  1. CHANTIX [Suspect]
     Indication: SMOKING CESSATION THERAPY
     Dosage: TEXT:EVERY NIGHT
  2. RISPERDAL [Concomitant]

REACTIONS (3)
  - NIGHTMARE [None]
  - POSTPARTUM DEPRESSION [None]
  - SLEEP DISORDER [None]
